FAERS Safety Report 24545786 (Version 1)
Quarter: 2024Q4

REPORT INFORMATION
  Report Type: Spontaneous
  Country: FR (occurrence: FR)
  Receive Date: 20241024
  Receipt Date: 20241024
  Transmission Date: 20250115
  Serious: Yes (Hospitalization, Other)
  Sender: FRESENIUS KABI
  Company Number: None

PATIENT
  Age: 73 Year
  Sex: Female
  Weight: 90 kg

DRUGS (7)
  1. PROPOFOL [Suspect]
     Active Substance: PROPOFOL
     Indication: Induction of anaesthesia
     Dosage: DOSE UNKNWOWN
     Dates: start: 20240805, end: 20240805
  2. FUROSEMIDE [Suspect]
     Active Substance: FUROSEMIDE
     Indication: Hypertension
     Dosage: 40 MG/J?DOSAGE FORM: 1FP?ROA: INTRAVENOUS
     Dates: start: 20240805, end: 20240805
  3. KETAMINE [Suspect]
     Active Substance: KETAMINE
     Indication: Induction and maintenance of anaesthesia
     Dosage: DOSE UNKNOWN?ROA: INTRAVENOUS
     Dates: start: 20240805, end: 20240805
  4. KETOPROFEN [Suspect]
     Active Substance: KETOPROFEN
     Indication: Analgesic therapy
     Dosage: DOSE UNKNOWN?ROA: INTRAMUSCULAR
     Dates: start: 20240805, end: 20240805
  5. GLICLAZIDE [Suspect]
     Active Substance: GLICLAZIDE
     Indication: Diabetes mellitus
     Dosage: 30 MG/J
     Dates: start: 20240806, end: 20240806
  6. TRULICITY [Suspect]
     Active Substance: DULAGLUTIDE
     Indication: Diabetes mellitus
     Dosage: 1.5 MG/J?DOSAGE FORM: 1FP?ROA: SUBCUTAENOUS
     Dates: start: 20240807, end: 20240807
  7. METFORMIN [Suspect]
     Active Substance: METFORMIN HYDROCHLORIDE
     Indication: Diabetes mellitus
     Dosage: 3000 MG/J?DOSAGE FORM: 1FP?ROA: ORAL
     Dates: start: 20240806, end: 20240806

REACTIONS (2)
  - Ketoacidosis [Recovered/Resolved]
  - Acute kidney injury [Recovering/Resolving]

NARRATIVE: CASE EVENT DATE: 20240809
